FAERS Safety Report 10026835 (Version 1)
Quarter: 2014Q1

REPORT INFORMATION
  Report Type: Spontaneous
  Country: US (occurrence: US)
  Receive Date: 20140321
  Receipt Date: 20140321
  Transmission Date: 20141002
  Serious: Yes (Other)
  Sender: FDA-Public Use
  Company Number: US-ROCHE-1364736

PATIENT
  Age: 58 Year
  Sex: Male

DRUGS (2)
  1. CAPECITABINE [Suspect]
     Indication: RECTAL CANCER
     Dosage: ON DAYS 1- 38
     Route: 065
  2. CAPECITABINE [Suspect]
     Dosage: ON DAYS 1-14 OF EACH 21-DAY CYCLE
     Route: 065

REACTIONS (1)
  - Acute promyelocytic leukaemia [Unknown]
